FAERS Safety Report 14495210 (Version 1)
Quarter: 2018Q1

REPORT INFORMATION
  Report Type: Spontaneous
  Country: CA (occurrence: CA)
  Receive Date: 20180206
  Receipt Date: 20180206
  Transmission Date: 20180509
  Serious: Yes (Death, Hospitalization, Disabling, Other)
  Sender: FDA-Public Use
  Company Number: CA-BAUSCH-BL-2018-002872

PATIENT
  Age: 62 Year
  Sex: Male

DRUGS (21)
  1. LINEZOLID. [Suspect]
     Active Substance: LINEZOLID
     Indication: INTERVERTEBRAL DISCITIS
  2. CEFTAROLINE FOSAMIL ACETATE [Suspect]
     Active Substance: CEFTAROLINE FOSAMIL
     Indication: INTERVERTEBRAL DISCITIS
  3. CUBICIN [Suspect]
     Active Substance: DAPTOMYCIN
     Indication: OSTEOMYELITIS
     Dosage: POWDER FOR SOLUTION FOR INTRAVENOUS
     Route: 042
  4. TIGECYCLINE. [Suspect]
     Active Substance: TIGECYCLINE
     Indication: PARASPINAL ABSCESS
     Route: 042
  5. DOXYCYCLINE. [Suspect]
     Active Substance: DOXYCYCLINE
     Indication: INTERVERTEBRAL DISCITIS
  6. CEFTAROLINE FOSAMIL ACETATE [Suspect]
     Active Substance: CEFTAROLINE FOSAMIL
     Indication: PARASPINAL ABSCESS
     Route: 042
  7. CUBICIN [Suspect]
     Active Substance: DAPTOMYCIN
     Indication: INTERVERTEBRAL DISCITIS
     Route: 042
  8. TIGECYCLINE. [Suspect]
     Active Substance: TIGECYCLINE
     Indication: OSTEOMYELITIS
     Route: 042
  9. TIGECYCLINE. [Suspect]
     Active Substance: TIGECYCLINE
     Indication: INTERVERTEBRAL DISCITIS
  10. VANCOMYCIN [Suspect]
     Active Substance: VANCOMYCIN
     Indication: OSTEOMYELITIS
  11. RIFAMPIN. [Suspect]
     Active Substance: RIFAMPIN
     Indication: OSTEOMYELITIS
  12. RIFAMPIN. [Suspect]
     Active Substance: RIFAMPIN
     Indication: INTERVERTEBRAL DISCITIS
  13. LINEZOLID. [Suspect]
     Active Substance: LINEZOLID
     Indication: PARASPINAL ABSCESS
     Route: 048
  14. VANCOMYCIN [Suspect]
     Active Substance: VANCOMYCIN
     Indication: INTERVERTEBRAL DISCITIS
  15. CEFTAROLINE FOSAMIL ACETATE [Suspect]
     Active Substance: CEFTAROLINE FOSAMIL
     Indication: OSTEOMYELITIS
  16. CUBICIN [Suspect]
     Active Substance: DAPTOMYCIN
     Indication: PARASPINAL ABSCESS
     Route: 065
  17. DOXYCYCLINE. [Suspect]
     Active Substance: DOXYCYCLINE
     Indication: PARASPINAL ABSCESS
     Route: 048
  18. DOXYCYCLINE. [Suspect]
     Active Substance: DOXYCYCLINE
     Indication: OSTEOMYELITIS
  19. VANCOMYCIN [Suspect]
     Active Substance: VANCOMYCIN
     Indication: PARASPINAL ABSCESS
     Route: 042
  20. RIFAMPIN. [Suspect]
     Active Substance: RIFAMPIN
     Indication: PARASPINAL ABSCESS
     Route: 048
  21. LINEZOLID. [Suspect]
     Active Substance: LINEZOLID
     Indication: OSTEOMYELITIS

REACTIONS (6)
  - General physical health deterioration [Fatal]
  - Treatment failure [Fatal]
  - Staphylococcal infection [Fatal]
  - Hypophagia [Fatal]
  - Thrombocytopenia [Fatal]
  - Transaminases increased [Fatal]
